FAERS Safety Report 8083932-5 (Version None)
Quarter: 2012Q1

REPORT INFORMATION
  Report Type: 
  Country: None (occurrence: None)
  Receive Date: 20120128
  Receipt Date: 20110113
  Transmission Date: 20120608
  Serious: No
  Sender: FDA-Public Use
  Company Number: US-ABBOTT-11P-163-0697312-00

PATIENT
  Age: 33 Year
  Sex: Female

DRUGS (18)
  1. AMBIEN [Concomitant]
     Indication: INSOMNIA
     Dosage: AT BEDTIME
  2. VITAMIN D [Concomitant]
     Indication: PRODUCT USED FOR UNKNOWN INDICATION
  3. CALCIUM [Concomitant]
     Indication: MINERAL SUPPLEMENTATION
  4. IRON [Concomitant]
     Indication: ANAEMIA
  5. ZOVIRAX [Concomitant]
     Indication: HERPES VIRUS INFECTION
  6. VITAMIN B-12 [Concomitant]
     Indication: VITAMIN SUPPLEMENTATION
  7. FOLIC ACID [Concomitant]
     Indication: VITAMIN SUPPLEMENTATION
  8. UNKNOWN MEDICATION [Concomitant]
     Indication: GASTROOESOPHAGEAL REFLUX DISEASE
  9. MIRAMPEX [Concomitant]
     Indication: RESTLESS LEGS SYNDROME
     Dosage: AT BEDTIME
  10. WELLBUTRIN [Concomitant]
     Indication: EX-TOBACCO USER
  11. HUMIRA [Suspect]
     Indication: CROHN'S DISEASE
     Dates: start: 20100901
  12. IMITREX [Concomitant]
     Indication: MIGRAINE
  13. ONDANSETRON HCL [Concomitant]
     Indication: NAUSEA
  14. LIALDA [Concomitant]
     Indication: CROHN'S DISEASE
  15. ACYCLOVIR [Concomitant]
     Indication: HERPES VIRUS INFECTION
  16. XANAX [Concomitant]
     Indication: ANXIETY
     Dosage: AS REQUIRED
  17. OXYCODONE HCL [Concomitant]
     Indication: PAIN
  18. WELLBUTRIN [Concomitant]
     Indication: DEPRESSION

REACTIONS (5)
  - DIARRHOEA [None]
  - MUSCLE SPASMS [None]
  - NAUSEA [None]
  - CROHN'S DISEASE [None]
  - HYPOPHAGIA [None]
